FAERS Safety Report 19483980 (Version 1)
Quarter: 2021Q3

REPORT INFORMATION
  Report Type: Spontaneous
  Country: GB (occurrence: GB)
  Receive Date: 20210701
  Receipt Date: 20210701
  Transmission Date: 20211014
  Serious: Yes (Other)
  Sender: FDA-Public Use
  Company Number: GB-MYLANLABS-2021M1038241

PATIENT
  Age: 24 Year
  Sex: Male
  Weight: 84 kg

DRUGS (7)
  1. PHENOXYMETHYLPENICILLIN [Concomitant]
     Active Substance: PENICILLIN V
     Indication: ILL-DEFINED DISORDER
     Dosage: TAKE TWO TABLETS 4 TIMES/DAY
     Dates: start: 20210513, end: 20210523
  2. BETNOVATE [Concomitant]
     Active Substance: BETAMETHASONE
     Indication: ILL-DEFINED DISORDER
     Dosage: TWICE A DAY FOR ONE WEEK
     Dates: start: 20210329, end: 20210426
  3. FEXOFENADINE [Concomitant]
     Active Substance: FEXOFENADINE HYDROCHLORIDE
     Indication: ILL-DEFINED DISORDER
     Dosage: TAKE ONE DAILY FOR ITCH
     Dates: start: 20210616
  4. FLUCLOXACILLIN [Concomitant]
     Active Substance: FLUCLOXACILLIN
     Indication: ILL-DEFINED DISORDER
     Dosage: TAKE ONE 4 TIMES/DAY
     Dates: start: 20210616, end: 20210623
  5. HYDROCORTISONE. [Concomitant]
     Active Substance: HYDROCORTISONE
     Indication: ILL-DEFINED DISORDER
     Dosage: USE ON FACE IF NEEDED
     Dates: start: 20210329, end: 20210426
  6. SERTRALINE [Suspect]
     Active Substance: SERTRALINE HYDROCHLORIDE
     Indication: PRODUCT USED FOR UNKNOWN INDICATION
     Dosage: 50 MILLIGRAM, QD
     Dates: start: 20210616
  7. CLOTRIMAZOLE. [Concomitant]
     Active Substance: CLOTRIMAZOLE
     Indication: ILL-DEFINED DISORDER
     Dosage: APPLY THINLY ONCE AT NIGHT TO AFFECTED AREAS OF...
     Dates: start: 20210513, end: 20210523

REACTIONS (1)
  - Contusion [Unknown]

NARRATIVE: CASE EVENT DATE: 20210623
